FAERS Safety Report 11763799 (Version 1)
Quarter: 2015Q4

REPORT INFORMATION
  Report Type: Spontaneous
  Country: US (occurrence: US)
  Receive Date: 20151120
  Receipt Date: 20151120
  Transmission Date: 20160304
  Serious: No
  Sender: FDA-Public Use
  Company Number: US-ELI_LILLY_AND_COMPANY-US201304006898

PATIENT
  Age: 56 Year
  Sex: Female

DRUGS (1)
  1. FORTEO [Suspect]
     Active Substance: TERIPARATIDE
     Indication: METABOLIC DISORDER
     Dosage: UNK, QD

REACTIONS (5)
  - Localised infection [Unknown]
  - Rotator cuff syndrome [Unknown]
  - Off label use [Unknown]
  - Weight increased [Unknown]
  - Contusion [Unknown]
